FAERS Safety Report 9789688 (Version 1)
Quarter: 2013Q4

REPORT INFORMATION
  Report Type: Spontaneous
  Country: AU (occurrence: None)
  Receive Date: 20131227
  Receipt Date: 20131227
  Transmission Date: 20140711
  Serious: Yes (Other)
  Sender: FDA-Public Use
  Company Number: 2088227

PATIENT
  Age: 55 Year
  Sex: Male

DRUGS (5)
  1. GEMCITABINE HYDROCHLORIDE [Suspect]
     Indication: ADENOCARCINOMA PANCREAS
     Dosage: CYCLICAL
     Route: 042
     Dates: start: 20110712
  2. PANCREATIC ENZYMES [Concomitant]
  3. OMEPRAZOLE [Concomitant]
  4. SODIUM VALPROATE [Concomitant]
  5. TRANYLCYPROMINE [Concomitant]

REACTIONS (6)
  - Thrombotic microangiopathy [None]
  - Diarrhoea [None]
  - Oedema [None]
  - Haemoglobin decreased [None]
  - Malignant neoplasm progression [None]
  - Adenocarcinoma pancreas [None]
